FAERS Safety Report 20125480 (Version 1)
Quarter: 2021Q4

REPORT INFORMATION
  Report Type: Spontaneous
  Country: IN (occurrence: IN)
  Receive Date: 20211129
  Receipt Date: 20211129
  Transmission Date: 20220303
  Serious: Yes (Hospitalization, Other)
  Sender: FDA-Public Use
  Company Number: IN-PFIZER INC-202101593670

PATIENT
  Age: 33 Year
  Sex: Male

DRUGS (1)
  1. CRIZOTINIB [Suspect]
     Active Substance: CRIZOTINIB

REACTIONS (9)
  - Seizure [Unknown]
  - Brain herniation [Unknown]
  - Headache [Unknown]
  - Vomiting [Unknown]
  - Confusional state [Unknown]
  - Neoplasm progression [Unknown]
  - Oedema [Unknown]
  - Mass [Unknown]
  - Blood bicarbonate decreased [Unknown]

NARRATIVE: CASE EVENT DATE: 20211015
